FAERS Safety Report 22662878 (Version 3)
Quarter: 2023Q4

REPORT INFORMATION
  Report Type: Report from Study
  Country: CO (occurrence: CO)
  Receive Date: 20230702
  Receipt Date: 20231106
  Transmission Date: 20240110
  Serious: Yes (Hospitalization, Other)
  Sender: FDA-Public Use
  Company Number: CO-JNJFOC-20230656449

PATIENT
  Age: 75 Year
  Sex: Male
  Weight: 59 kg

DRUGS (2)
  1. IMBRUVICA [Suspect]
     Active Substance: IBRUTINIB
     Indication: Chronic lymphocytic leukaemia
     Route: 048
     Dates: start: 20211011
  2. ERYTHROPOIETIN [Concomitant]
     Active Substance: ERYTHROPOIETIN
     Indication: Product used for unknown indication
     Dosage: 30,000 IU/0.6 ML
     Route: 065

REACTIONS (12)
  - Conjunctivitis [Not Recovered/Not Resolved]
  - Cholelithiasis [Not Recovered/Not Resolved]
  - Pleural effusion [Not Recovered/Not Resolved]
  - Abdominal pain [Not Recovered/Not Resolved]
  - Cyst [Not Recovered/Not Resolved]
  - Prostatitis [Not Recovered/Not Resolved]
  - Pyrexia [Not Recovered/Not Resolved]
  - Surgery [Unknown]
  - Cardiac failure [Unknown]
  - Gallbladder operation [Unknown]
  - Corneal abrasion [Unknown]
  - Post procedural complication [Recovering/Resolving]

NARRATIVE: CASE EVENT DATE: 20230617
